FAERS Safety Report 8043034-0 (Version None)
Quarter: 2012Q1

REPORT INFORMATION
  Report Type: 
  Country: None (occurrence: None)
  Receive Date: 20120112
  Receipt Date: 20120105
  Transmission Date: 20120608
  Serious: Yes (Hospitalization, Other)
  Sender: FDA-Public Use
  Company Number: PHHY2009CA25068

PATIENT
  Sex: Female

DRUGS (1)
  1. SANDOSTATIN LAR [Suspect]
     Indication: METASTATIC CARCINOID TUMOUR
     Dosage: 30 MG, QMO
     Route: 030
     Dates: start: 20071214, end: 20081212

REACTIONS (14)
  - SEPSIS [None]
  - NAUSEA [None]
  - ABDOMINAL PAIN [None]
  - DECREASED APPETITE [None]
  - ANAEMIA [None]
  - PNEUMONIA [None]
  - WEIGHT DECREASED [None]
  - HYPOGLYCAEMIA [None]
  - BLOOD COUNT ABNORMAL [None]
  - GENERAL PHYSICAL HEALTH DETERIORATION [None]
  - BLOOD PRESSURE INCREASED [None]
  - BLOOD GLUCOSE FLUCTUATION [None]
  - HEART RATE DECREASED [None]
  - POST PROCEDURAL COMPLICATION [None]
